FAERS Safety Report 5325748-6 (Version None)
Quarter: 2007Q2

REPORT INFORMATION
  Report Type: 
  Country: None (occurrence: None)
  Receive Date: 20070515
  Receipt Date: 20070509
  Transmission Date: 20071010
  Serious: Yes (Other)
  Sender: FDA-Public Use
  Company Number: US-MERCK-0705USA01958

PATIENT
  Age: 67 Year
  Sex: Male

DRUGS (2)
  1. DECADRON [Suspect]
     Route: 065
  2. LIPITOR [Suspect]
     Route: 048
     Dates: start: 20000101

REACTIONS (2)
  - ARTHROPATHY [None]
  - MUSCLE ATROPHY [None]
